FAERS Safety Report 12364088 (Version 5)
Quarter: 2016Q4

REPORT INFORMATION
  Report Type: Report from Study
  Country: ID (occurrence: ID)
  Receive Date: 20160513
  Receipt Date: 20161017
  Transmission Date: 20170207
  Serious: Yes (Death, Life-Threatening, Hospitalization, Other)
  Sender: FDA-Public Use
  Company Number: ID-BAYER-2016-085923

PATIENT
  Age: 51 Year
  Sex: Male

DRUGS (1)
  1. NEXAVAR [Suspect]
     Active Substance: SORAFENIB
     Indication: HEPATOCELLULAR CARCINOMA
     Dosage: 200 MG, BID
     Route: 048
     Dates: start: 20160331, end: 20160810

REACTIONS (14)
  - Fatigue [Not Recovered/Not Resolved]
  - Constipation [Not Recovered/Not Resolved]
  - Blood glucose decreased [Fatal]
  - Gingival bleeding [Recovering/Resolving]
  - Oesophageal varices haemorrhage [None]
  - Faeces discoloured [Not Recovered/Not Resolved]
  - Headache [Not Recovered/Not Resolved]
  - Hypophagia [None]
  - Seizure [Fatal]
  - Hepatic failure [Fatal]
  - Platelet count decreased [Not Recovered/Not Resolved]
  - Abdominal distension [Not Recovered/Not Resolved]
  - Influenza [Recovering/Resolving]
  - Oedema peripheral [None]

NARRATIVE: CASE EVENT DATE: 201604
